FAERS Safety Report 25223740 (Version 1)
Quarter: 2025Q2

REPORT INFORMATION
  Report Type: 
  Country: AU (occurrence: AU)
  Receive Date: 20250422
  Receipt Date: 20250422
  Transmission Date: 20250716
  Serious: Yes (Other)
  Sender: CELLTRION
  Company Number: AU-CELLTRION INC.-2025AU011473

PATIENT

DRUGS (57)
  1. TRASTUZUMAB [Suspect]
     Active Substance: TRASTUZUMAB
     Indication: Product used for unknown indication
  2. DOXYCYCLINE HYDROCHLORIDE [Suspect]
     Active Substance: DOXYCYCLINE HYDROCHLORIDE
     Indication: Product used for unknown indication
  3. ENHERTU [Suspect]
     Active Substance: FAM-TRASTUZUMAB DERUXTECAN-NXKI
     Indication: Product used for unknown indication
  4. FASLODEX [Suspect]
     Active Substance: FULVESTRANT
     Indication: Product used for unknown indication
  5. KADCYLA [Suspect]
     Active Substance: ADO-TRASTUZUMAB EMTANSINE
     Indication: Product used for unknown indication
  6. NAVELBINE [Suspect]
     Active Substance: VINORELBINE TARTRATE
     Indication: Product used for unknown indication
  7. PERJETA [Suspect]
     Active Substance: PERTUZUMAB
     Indication: Product used for unknown indication
  8. TAXOTERE [Suspect]
     Active Substance: DOCETAXEL
     Indication: Product used for unknown indication
  9. DENOSUMAB [Suspect]
     Active Substance: DENOSUMAB
     Indication: Product used for unknown indication
  10. DOXORUBICIN HYDROCHLORIDE [Suspect]
     Active Substance: DOXORUBICIN HYDROCHLORIDE
     Indication: Product used for unknown indication
  11. PEGFILGRASTIM [Suspect]
     Active Substance: PEGFILGRASTIM
     Indication: Product used for unknown indication
  12. PERTUZUMAB [Suspect]
     Active Substance: PERTUZUMAB
     Indication: Product used for unknown indication
  13. ADO-TRASTUZUMAB EMTANSINE [Suspect]
     Active Substance: ADO-TRASTUZUMAB EMTANSINE
     Indication: Product used for unknown indication
  14. BLEOMYCIN SULFATE [Suspect]
     Active Substance: BLEOMYCIN SULFATE
     Indication: Product used for unknown indication
  15. CAPECITABINE [Suspect]
     Active Substance: CAPECITABINE
     Indication: Product used for unknown indication
  16. CARBOXYMETHYLCELLULOSE SODIUM [Suspect]
     Active Substance: CARBOXYMETHYLCELLULOSE SODIUM
     Indication: Product used for unknown indication
  17. DOCETAXEL [Suspect]
     Active Substance: DOCETAXEL
     Indication: Product used for unknown indication
  18. FULVESTRANT [Suspect]
     Active Substance: FULVESTRANT
     Indication: Product used for unknown indication
  19. LAPATINIB [Suspect]
     Active Substance: LAPATINIB
     Indication: Product used for unknown indication
  20. ACETAMINOPHEN [Suspect]
     Active Substance: ACETAMINOPHEN
     Indication: Product used for unknown indication
  21. TRASTUZUMAB DERUXTECAN [Suspect]
     Active Substance: TRASTUZUMAB DERUXTECAN
     Indication: Product used for unknown indication
  22. TUCATINIB [Suspect]
     Active Substance: TUCATINIB
     Indication: Product used for unknown indication
  23. VINORELBINE [Suspect]
     Active Substance: VINORELBINE TARTRATE
     Indication: Product used for unknown indication
  24. TYKERB [Suspect]
     Active Substance: LAPATINIB DITOSYLATE
     Indication: Product used for unknown indication
  25. XELODA [Suspect]
     Active Substance: CAPECITABINE
     Indication: Product used for unknown indication
  26. XGEVA [Suspect]
     Active Substance: DENOSUMAB
     Indication: Product used for unknown indication
  27. BUTYLSCOPOLAMINE BROMIDE [Concomitant]
     Active Substance: BUTYLSCOPOLAMINE BROMIDE
  28. CURAM [AMOXICILLIN TRIHYDRATE;CLAVULANATE POTASSIUM] [Concomitant]
  29. EMEND [Concomitant]
     Active Substance: APREPITANT
  30. LOVENOX [Concomitant]
     Active Substance: ENOXAPARIN SODIUM
  31. POLYETHYLENE GLYCOL 3350\POTASSIUM CHLORIDE\SODIUM BICARBONATE\SODIUM [Concomitant]
     Active Substance: POLYETHYLENE GLYCOL 3350\POTASSIUM CHLORIDE\SODIUM BICARBONATE\SODIUM CHLORIDE
  32. PARACODIN [DIHYDROCODEINE] [Concomitant]
  33. FILGRASTIM [Concomitant]
     Active Substance: FILGRASTIM
  34. OLIVE OIL [Concomitant]
     Active Substance: OLIVE OIL
  35. PEGFILGRASTIM [Concomitant]
     Active Substance: PEGFILGRASTIM
  36. ALPRAZOLAM [Concomitant]
     Active Substance: ALPRAZOLAM
  37. BETAMETHASONE DIPROPIONATE [Concomitant]
     Active Substance: BETAMETHASONE DIPROPIONATE
  38. DEXAMETHASONE [Concomitant]
     Active Substance: DEXAMETHASONE
  39. DROPERIDOL [Concomitant]
     Active Substance: DROPERIDOL
  40. FENTANYL [Concomitant]
     Active Substance: FENTANYL
  41. FUROSEMIDE [Concomitant]
     Active Substance: FUROSEMIDE
  42. HYDROMORPHONE HYDROCHLORIDE [Concomitant]
     Active Substance: HYDROMORPHONE HYDROCHLORIDE
  43. BUTYLSCOPOLAMINE BROMIDE [Concomitant]
     Active Substance: BUTYLSCOPOLAMINE BROMIDE
  44. LACTULOSE [Concomitant]
     Active Substance: LACTULOSE
  45. LEVOTHYROXINE SODIUM [Concomitant]
     Active Substance: LEVOTHYROXINE SODIUM
  46. LORAZEPAM [Concomitant]
     Active Substance: LORAZEPAM
  47. ONDANSETRON [Concomitant]
     Active Substance: ONDANSETRON
  48. PANTOPRAZOLE SODIUM [Concomitant]
     Active Substance: PANTOPRAZOLE SODIUM
  49. ACETAMINOPHEN [Concomitant]
     Active Substance: ACETAMINOPHEN
  50. POTASSIUM CHLORIDE [Concomitant]
     Active Substance: POTASSIUM CHLORIDE
  51. POVIDONE-IODINE [Concomitant]
     Active Substance: POVIDONE-IODINE
  52. PREGABALIN [Concomitant]
     Active Substance: PREGABALIN
  53. RETINOL [Concomitant]
     Active Substance: RETINOL
  54. SODIUM CHLORIDE [Concomitant]
     Active Substance: SODIUM CHLORIDE
  55. TRAZODONE HYDROCHLORIDE [Concomitant]
     Active Substance: TRAZODONE HYDROCHLORIDE
  56. VITAMIN C [Concomitant]
     Active Substance: ASCORBIC ACID
  57. ZOFRAN [Concomitant]
     Active Substance: ONDANSETRON HYDROCHLORIDE

REACTIONS (22)
  - Metastases to central nervous system [Unknown]
  - Metastases to lymph nodes [Unknown]
  - Brain oedema [Unknown]
  - Pseudomonal sepsis [Unknown]
  - Sepsis [Unknown]
  - Streptococcal sepsis [Unknown]
  - Vascular device infection [Unknown]
  - C-reactive protein increased [Unknown]
  - Eczema [Unknown]
  - Nail bed inflammation [Unknown]
  - Nasal mucosal disorder [Unknown]
  - Restlessness [Unknown]
  - Skin fissures [Unknown]
  - Varicose vein [Unknown]
  - Back pain [Unknown]
  - Candida infection [Unknown]
  - Fatigue [Unknown]
  - Nausea [Unknown]
  - Paronychia [Unknown]
  - Pleural effusion [Unknown]
  - Vomiting [Unknown]
  - Off label use [Unknown]
